FAERS Safety Report 10922673 (Version 2)
Quarter: 2015Q1

REPORT INFORMATION
  Report Type: Spontaneous
  Country: US (occurrence: None)
  Receive Date: 20150313
  Receipt Date: 20150323
  Transmission Date: 20150721
  Serious: No
  Sender: FDA-Public Use
  Company Number: 2015-00028

PATIENT
  Age: 30 Year
  Sex: Male
  Weight: 86.18 kg

DRUGS (2)
  1. ZICAM COLD REMEDY [Suspect]
     Active Substance: ZINC ACETATE\ZINC GLUCONATE
     Indication: NASOPHARYNGITIS
     Dosage: 4 SPRAYS ORALLY EVERY 3-7 HRS
     Route: 048
     Dates: start: 20150302
  2. ZICAM COLD REMEDY [Suspect]
     Active Substance: ZINC ACETATE\ZINC GLUCONATE
     Indication: INFLUENZA
     Dosage: 4 SPRAYS ORALLY EVERY 3-7 HRS
     Route: 048
     Dates: start: 20150302

REACTIONS (3)
  - Ageusia [None]
  - Hypoaesthesia [None]
  - Anosmia [None]

NARRATIVE: CASE EVENT DATE: 20150302
